FAERS Safety Report 23153626 (Version 1)
Quarter: 2023Q4

REPORT INFORMATION
  Report Type: Spontaneous
  Country: BR (occurrence: BR)
  Receive Date: 20231107
  Receipt Date: 20231107
  Transmission Date: 20240109
  Serious: Yes (Death)
  Sender: FDA-Public Use
  Company Number: BR-BAYER-2023A155634

PATIENT
  Age: 37 Year
  Sex: Female

DRUGS (1)
  1. BETAFERON [Suspect]
     Active Substance: INTERFERON BETA-1B

REACTIONS (5)
  - Multiple sclerosis [Fatal]
  - Asthenia [None]
  - Limb discomfort [None]
  - Fatigue [None]
  - Lung disorder [None]
